FAERS Safety Report 7224241-3 (Version None)
Quarter: 2011Q1

REPORT INFORMATION
  Report Type: 
  Country: None (occurrence: None)
  Receive Date: 20110106
  Receipt Date: 20110106
  Transmission Date: 20110831
  Serious: Yes (Other)
  Sender: FDA-Public Use
  Company Number: None

PATIENT
  Sex: Male
  Weight: 6.7 kg

DRUGS (1)
  1. ACTHAR-GEL INJ [Suspect]
     Indication: INFANTILE SPASMS
     Dosage: 0.6ML QAM IM
     Route: 030
     Dates: start: 20101130, end: 20101230

REACTIONS (3)
  - NO THERAPEUTIC RESPONSE [None]
  - PRODUCT COUNTERFEIT [None]
  - DEVELOPMENTAL DELAY [None]
